APPROVED DRUG PRODUCT: NAFTIFINE HYDROCHLORIDE
Active Ingredient: NAFTIFINE HYDROCHLORIDE
Strength: 1%
Dosage Form/Route: CREAM;TOPICAL
Application: A205975 | Product #001
Applicant: SUN PHARMA CANADA INC
Approved: Sep 8, 2016 | RLD: No | RS: Yes | Type: RX